FAERS Safety Report 22228018 (Version 1)
Quarter: 2023Q2

REPORT INFORMATION
  Report Type: Report from Study
  Country: BR (occurrence: BR)
  Receive Date: 20230419
  Receipt Date: 20230419
  Transmission Date: 20230722
  Serious: Yes (Other)
  Sender: FDA-Public Use
  Company Number: BR-JNJFOC-20230429248

PATIENT
  Age: 44 Year
  Sex: Female

DRUGS (2)
  1. SIMPONI [Suspect]
     Active Substance: GOLIMUMAB
     Indication: Rheumatoid arthritis
     Route: 058
     Dates: start: 20161115
  2. SIMPONI [Suspect]
     Active Substance: GOLIMUMAB

REACTIONS (7)
  - Neuropathy peripheral [Unknown]
  - Cholelithiasis [Unknown]
  - Blood pressure increased [Not Recovered/Not Resolved]
  - Visual acuity reduced [Not Recovered/Not Resolved]
  - Sinusitis [Not Recovered/Not Resolved]
  - Tooth infection [Unknown]
  - Pain in extremity [Unknown]
